FAERS Safety Report 7961848-X (Version None)
Quarter: 2011Q4

REPORT INFORMATION
  Report Type: 
  Country: None (occurrence: None)
  Receive Date: 20111207
  Receipt Date: 20111130
  Transmission Date: 20120403
  Serious: Yes (Other)
  Sender: FDA-Public Use
  Company Number: US-ROCHE-1007151

PATIENT
  Sex: Female

DRUGS (5)
  1. BUTRANS [Suspect]
     Indication: ARTHRALGIA
     Dosage: 10
     Dates: start: 20110418, end: 20110610
  2. TIZANIDINE HCL [Concomitant]
     Indication: MUSCLE SPASMS
     Route: 048
     Dates: start: 20100621
  3. PERCOCET [Concomitant]
     Indication: PAIN
     Dosage: 5/325
  4. KLONOPIN [Suspect]
     Indication: POOR QUALITY SLEEP
     Route: 048
     Dates: start: 20101004
  5. BUTRANS [Suspect]
     Dosage: 10
     Dates: start: 20110820, end: 20110909

REACTIONS (4)
  - OEDEMA [None]
  - RESPIRATORY DEPRESSION [None]
  - FLUID RETENTION [None]
  - SLEEP APNOEA SYNDROME [None]
